FAERS Safety Report 21040505 (Version 4)
Quarter: 2022Q4

REPORT INFORMATION
  Report Type: Spontaneous
  Country: US (occurrence: US)
  Receive Date: 20220704
  Receipt Date: 20221130
  Transmission Date: 20230113
  Serious: Yes (Other)
  Sender: FDA-Public Use
  Company Number: US-SA-SAC20220629000754

PATIENT
  Age: 61 Year
  Sex: Male

DRUGS (2)
  1. DUPIXENT [Suspect]
     Active Substance: DUPILUMAB
     Indication: Eczema
     Dosage: 300 MG, QOW
     Route: 058
     Dates: end: 2022
  2. DUPIXENT [Suspect]
     Active Substance: DUPILUMAB
     Dosage: 300 MG, QOW
     Route: 058
     Dates: start: 2022

REACTIONS (5)
  - Cellulitis [Unknown]
  - Injection site pain [Unknown]
  - Product preparation error [Unknown]
  - Eczema [Recovering/Resolving]
  - Rash [Recovering/Resolving]
